FAERS Safety Report 5921333-3 (Version None)
Quarter: 2008Q4

REPORT INFORMATION
  Report Type: 
  Country: None (occurrence: None)
  Receive Date: 20081016
  Receipt Date: 20081006
  Transmission Date: 20090506
  Serious: Yes (Hospitalization)
  Sender: FDA-Public Use
  Company Number: FR-ABBOTT-08P-056-0480396-00

PATIENT
  Sex: Male

DRUGS (5)
  1. VERCYTE [Suspect]
     Indication: POLYCYTHAEMIA VERA
     Route: 048
  2. PROPRANOLOL [Suspect]
     Indication: MALAISE
     Route: 048
  3. VERAPAMIL [Suspect]
     Indication: TACHYCARDIA
     Route: 048
  4. ACETAMINOPHEN [Concomitant]
     Indication: MIGRAINE
  5. UNSPECIFIED ANXIOLYTICS [Concomitant]

REACTIONS (9)
  - CD4 LYMPHOCYTES INCREASED [None]
  - CONDITION AGGRAVATED [None]
  - ERYTHEMA [None]
  - INFLAMMATION [None]
  - LYMPHOCYTE MORPHOLOGY ABNORMAL [None]
  - OEDEMA PERIPHERAL [None]
  - PAIN IN EXTREMITY [None]
  - SKIN PLAQUE [None]
  - URTICARIA [None]
